FAERS Safety Report 16848392 (Version 1)
Quarter: 2019Q3

REPORT INFORMATION
  Report Type: Spontaneous
  Country: CA (occurrence: CA)
  Receive Date: 20190925
  Receipt Date: 20190925
  Transmission Date: 20191005
  Serious: Yes (Hospitalization)
  Sender: FDA-Public Use
  Company Number: CA-TEVA-2019-CA-1111188

PATIENT
  Age: 47 Year
  Sex: Female

DRUGS (12)
  1. ONDANSETRON [Suspect]
     Active Substance: ONDANSETRON
     Indication: NAUSEA
     Route: 065
  2. ILARIS [Suspect]
     Active Substance: CANAKINUMAB
     Route: 042
  3. ILARIS [Suspect]
     Active Substance: CANAKINUMAB
     Route: 058
  4. ILARIS [Suspect]
     Active Substance: CANAKINUMAB
     Route: 058
  5. ILARIS [Suspect]
     Active Substance: CANAKINUMAB
     Route: 030
  6. ILARIS [Suspect]
     Active Substance: CANAKINUMAB
     Route: 058
  7. PREDNISONE. [Concomitant]
     Active Substance: PREDNISONE
  8. ILARIS [Suspect]
     Active Substance: CANAKINUMAB
     Indication: FAMILIAL COLD AUTOINFLAMMATORY SYNDROME
     Route: 030
  9. ILARIS [Suspect]
     Active Substance: CANAKINUMAB
     Route: 058
  10. ILARIS [Suspect]
     Active Substance: CANAKINUMAB
     Route: 058
  11. ONDANSETRON [Suspect]
     Active Substance: ONDANSETRON
     Route: 048
  12. TELMISARTAN. [Suspect]
     Active Substance: TELMISARTAN
     Indication: PRODUCT USED FOR UNKNOWN INDICATION
     Route: 065

REACTIONS (17)
  - Vomiting [Recovering/Resolving]
  - Fatigue [Recovering/Resolving]
  - Headache [Recovering/Resolving]
  - Nausea [Recovering/Resolving]
  - Abdominal pain [Recovering/Resolving]
  - Adrenal disorder [Recovering/Resolving]
  - Malaise [Recovering/Resolving]
  - Colitis [Recovering/Resolving]
  - White blood cell count decreased [Recovering/Resolving]
  - Body temperature increased [Recovering/Resolving]
  - Ear infection [Recovering/Resolving]
  - Familial cold autoinflammatory syndrome [Recovering/Resolving]
  - Anxiety [Recovering/Resolving]
  - Nervousness [Recovering/Resolving]
  - Diarrhoea [Recovering/Resolving]
  - Insomnia [Recovering/Resolving]
  - Weight decreased [Recovering/Resolving]
